FAERS Safety Report 5064812-6 (Version None)
Quarter: 2006Q3

REPORT INFORMATION
  Report Type: 
  Country: None (occurrence: None)
  Receive Date: 20060728
  Receipt Date: 20030403
  Transmission Date: 20061208
  Serious: Yes (Other)
  Sender: FDA-Public Use
  Company Number: 2003UW04327

PATIENT
  Age: 811 Month
  Weight: 75 kg

DRUGS (7)
  1. ARIMIDEX [Suspect]
     Indication: BREAST CANCER
     Route: 048
     Dates: start: 20021101
  2. VITAMINS [Concomitant]
  3. MINERAL TAB [Concomitant]
  4. LIPITOR [Concomitant]
  5. CALCIUM GLUCONATE [Concomitant]
  6. FOSOMAX [Concomitant]
  7. OTHER OSTEOPOROTIC MEDICATION [Concomitant]

REACTIONS (7)
  - DENTAL CARIES [None]
  - DENTAL IMPLANTATION [None]
  - DISEASE PROGRESSION [None]
  - LOOSE TOOTH [None]
  - OSTEOPENIA [None]
  - PERIODONTAL DISEASE [None]
  - TOOTH LOSS [None]
